FAERS Safety Report 23566994 (Version 1)
Quarter: 2024Q1

REPORT INFORMATION
  Report Type: Spontaneous
  Country: US (occurrence: US)
  Receive Date: 20240226
  Receipt Date: 20240226
  Transmission Date: 20240409
  Serious: Yes (Other)
  Sender: FDA-Public Use
  Company Number: US-AMNEAL PHARMACEUTICALS-2023-AMRX-03918

PATIENT
  Sex: Male
  Weight: 92.063 kg

DRUGS (12)
  1. RYTARY [Suspect]
     Active Substance: CARBIDOPA\LEVODOPA
     Indication: Product used for unknown indication
     Dosage: UNK
     Route: 048
     Dates: start: 20230120, end: 20230208
  2. ARMODAFINIL [Concomitant]
     Active Substance: ARMODAFINIL
     Indication: Product used for unknown indication
     Dosage: TAKE 2 TABLETS (100 MG TOTAL)
     Route: 048
     Dates: start: 20220925
  3. ACETYLCYSTEINE;FOLIC ACID;PYRIDOXINE;VITAMIN B12 NOS [Concomitant]
     Indication: Product used for unknown indication
     Dosage: 1000 MCG
     Route: 048
     Dates: start: 20230926
  4. GABAPENTIN [Concomitant]
     Active Substance: GABAPENTIN
     Indication: Product used for unknown indication
     Dosage: TAKE 2 CAPSULES BY MOUTH AT 5PM AND 2 CAPSULES BY MOUTH AT10PM
     Route: 048
     Dates: start: 20220725, end: 20230120
  5. GALANTAMINE [Concomitant]
     Active Substance: GALANTAMINE
     Indication: Product used for unknown indication
     Dosage: TAKE 1 CAPSULE (16 MG TOTAL) BY MOUTH DAILY WITH BREAKFAST DO NOT CHEW
     Route: 048
     Dates: start: 20230728
  6. MAGNESIUM OXIDE [Concomitant]
     Active Substance: MAGNESIUM OXIDE
     Indication: Product used for unknown indication
     Dosage: TAKE 1 MG BY MOUTH DAILY
     Route: 048
  7. VITAMIN D WITH OMEGA 3 [Concomitant]
     Indication: Product used for unknown indication
     Dosage: TAKE 2,000 IU BY MOUTH DAILY
     Route: 048
  8. PRAVASTATIN [Concomitant]
     Active Substance: PRAVASTATIN
     Indication: Product used for unknown indication
     Dosage: TAKE 40 MG BY MOUTH DAILY
     Route: 048
  9. RASAGILINE [Concomitant]
     Active Substance: RASAGILINE\RASAGILINE MESYLATE
     Indication: Product used for unknown indication
     Dosage: TAKE ONE TABLET BY MOUTH AT BEDTIME START DATE: 23 OCT 2023
     Route: 048
     Dates: start: 20230120, end: 20230526
  10. ROPINIROLE [Concomitant]
     Active Substance: ROPINIROLE
     Indication: Product used for unknown indication
     Dosage: TAKE 1 TABLET BY MOUTH 3 TIMES DAILY START DATE: 26 OCT 2023
     Route: 048
     Dates: start: 20230120, end: 20230526
  11. SILDENAFIL [Concomitant]
     Active Substance: SILDENAFIL
     Indication: Product used for unknown indication
     Dosage: TAKE 2- S TABLETS BY MOUTH ATLEAST 30 MINUTES PRIOR TO SEXUAL ACTIVITY AS NEEDED. MAX DOSE 5 TABLETS
     Route: 048
     Dates: start: 20180928
  12. TESTOSTERONE [Concomitant]
     Active Substance: TESTOSTERONE
     Indication: Product used for unknown indication
     Dosage: UNK
     Route: 030
     Dates: start: 20221114

REACTIONS (1)
  - Parkinson^s disease [Unknown]
